FAERS Safety Report 17580428 (Version 1)
Quarter: 2020Q1

REPORT INFORMATION
  Report Type: Spontaneous
  Country: US (occurrence: US)
  Receive Date: 20200325
  Receipt Date: 20200325
  Transmission Date: 20200409
  Serious: No
  Sender: FDA-Public Use
  Company Number: US-KVK-TECH, INC-2081944

PATIENT
  Sex: Female

DRUGS (7)
  1. AMITIZA [Concomitant]
     Active Substance: LUBIPROSTONE
     Route: 065
  2. SYNTHROID [Concomitant]
     Active Substance: LEVOTHYROXINE SODIUM
     Route: 065
  3. LOMAIRA [Suspect]
     Active Substance: PHENTERMINE HYDROCHLORIDE
     Indication: METABOLIC DISORDER
     Route: 048
     Dates: start: 2019
  4. SINGULAIR [Concomitant]
     Active Substance: MONTELUKAST SODIUM
     Route: 065
  5. BENTYL [Concomitant]
     Active Substance: DICYCLOMINE HYDROCHLORIDE
     Route: 065
  6. VALIUM [Concomitant]
     Active Substance: DIAZEPAM
     Route: 065
  7. PERCOCET [Concomitant]
     Active Substance: ACETAMINOPHEN\OXYCODONE HYDROCHLORIDE
     Route: 065

REACTIONS (3)
  - Intentional product use issue [Not Recovered/Not Resolved]
  - Insomnia [Recovering/Resolving]
  - Product use in unapproved indication [Not Recovered/Not Resolved]

NARRATIVE: CASE EVENT DATE: 2019
